FAERS Safety Report 6865725-7 (Version None)
Quarter: 2010Q3

REPORT INFORMATION
  Report Type: 
  Country: None (occurrence: None)
  Receive Date: 20100721
  Receipt Date: 20080430
  Transmission Date: 20110219
  Serious: No
  Sender: FDA-Public Use
  Company Number: US-PFIZER INC-2008038116

PATIENT
  Age: 61 Year
  Sex: Female
  Weight: 69.4 kg

DRUGS (3)
  1. CHANTIX [Suspect]
     Indication: SMOKING CESSATION THERAPY
     Route: 048
     Dates: start: 20080401, end: 20080410
  2. ATENOLOL [Concomitant]
     Indication: HYPERTENSION
  3. ACETYLSALICYLIC ACID [Concomitant]

REACTIONS (3)
  - ASTHENIA [None]
  - HEADACHE [None]
  - INFLUENZA LIKE ILLNESS [None]
